FAERS Safety Report 6903938-6 (Version None)
Quarter: 2010Q3

REPORT INFORMATION
  Report Type: 
  Country: None (occurrence: None)
  Receive Date: 20100804
  Receipt Date: 20090209
  Transmission Date: 20110219
  Serious: No
  Sender: FDA-Public Use
  Company Number: US-PFIZER INC-2009153074

PATIENT
  Sex: Female
  Weight: 58.957 kg

DRUGS (1)
  1. LYRICA [Suspect]
     Indication: PAIN IN EXTREMITY
     Dosage: 75 MG, 2X/DAY
     Dates: start: 20081201, end: 20090106

REACTIONS (3)
  - ARTHRALGIA [None]
  - DEPRESSION [None]
  - PAIN IN EXTREMITY [None]
